FAERS Safety Report 5609160-8 (Version None)
Quarter: 2008Q1

REPORT INFORMATION
  Report Type: 
  Country: None (occurrence: None)
  Receive Date: 20080130
  Receipt Date: 20080130
  Transmission Date: 20080703
  Serious: Yes (Hospitalization)
  Sender: FDA-Public Use
  Company Number: None

PATIENT
  Age: 80 Year
  Sex: Male
  Weight: 55.7924 kg

DRUGS (1)
  1. LAPATINIB [Suspect]
     Indication: PANCREATIC CARCINOMA
     Dosage: 1500MG DAILY PO
     Route: 048
     Dates: start: 20071203, end: 20080118

REACTIONS (13)
  - ABDOMINAL PAIN [None]
  - BILE DUCT OBSTRUCTION [None]
  - CHROMATURIA [None]
  - DYSPNOEA [None]
  - FATIGUE [None]
  - HYPERBILIRUBINAEMIA [None]
  - JAUNDICE [None]
  - LIVER FUNCTION TEST ABNORMAL [None]
  - MALIGNANT NEOPLASM PROGRESSION [None]
  - METASTASES TO LIVER [None]
  - PORTAL VEIN THROMBOSIS [None]
  - PRURITUS [None]
  - WEIGHT DECREASED [None]
